FAERS Safety Report 5874568-2 (Version None)
Quarter: 2008Q3

REPORT INFORMATION
  Report Type: 
  Country: None (occurrence: None)
  Receive Date: 20080909
  Receipt Date: 20080904
  Transmission Date: 20090109
  Serious: Yes (Death)
  Sender: FDA-Public Use
  Company Number: PHHY2008JP20259

PATIENT
  Age: 83 Year
  Sex: Male

DRUGS (5)
  1. NEORAL [Suspect]
     Indication: NEPHROTIC SYNDROME
     Dosage: 75 MG PER DAY
     Route: 048
     Dates: start: 20070401, end: 20080825
  2. DIOVAN [Concomitant]
     Dosage: 80 MG PER DAY
     Route: 048
  3. PREDONINE [Concomitant]
     Dosage: 30 MG , RE
  4. HUMULIN R [Concomitant]
     Dosage: 12 IU, RE
     Dates: start: 20080809, end: 20080825
  5. NEOPAREN [Concomitant]
     Dosage: 1600 ML, RE
     Dates: start: 20080809

REACTIONS (8)
  - CARDIAC FAILURE [None]
  - DEPRESSED LEVEL OF CONSCIOUSNESS [None]
  - OLIGURIA [None]
  - PLEURAL EFFUSION [None]
  - PULMONARY CONGESTION [None]
  - PULMONARY EMBOLISM [None]
  - PYREXIA [None]
  - THROMBOTIC THROMBOCYTOPENIC PURPURA [None]
